FAERS Safety Report 5006498-2 (Version None)
Quarter: 2006Q2

REPORT INFORMATION
  Report Type: 
  Country: None (occurrence: None)
  Receive Date: 20060519
  Receipt Date: 20060509
  Transmission Date: 20061013
  Serious: Yes (Death, Hospitalization)
  Sender: FDA-Public Use
  Company Number: NSADSS2001020095

PATIENT
  Sex: Female
  Weight: 96.62 kg

DRUGS (4)
  1. REMICADE [Suspect]
     Route: 041
     Dates: start: 20010614
  2. REMICADE [Suspect]
     Indication: RHEUMATOID ARTHRITIS
     Route: 041
     Dates: start: 20010614
  3. ARAVA [Concomitant]
     Indication: DRUG USE FOR UNKNOWN INDICATION
     Route: 065
  4. METHOTREXATE [Concomitant]
     Indication: DRUG USE FOR UNKNOWN INDICATION
     Route: 065

REACTIONS (3)
  - BLOOD ALKALINE PHOSPHATASE INCREASED [None]
  - DEATH [None]
  - HERNIA REPAIR [None]
